FAERS Safety Report 24639830 (Version 1)
Quarter: 2024Q4

REPORT INFORMATION
  Report Type: Spontaneous
  Country: US (occurrence: US)
  Receive Date: 20241120
  Receipt Date: 20241120
  Transmission Date: 20250114
  Serious: No
  Sender: ALVOGEN
  Company Number: US-ALVOGEN-2024093179

PATIENT
  Sex: Female

DRUGS (2)
  1. TERIPARATIDE [Suspect]
     Active Substance: TERIPARATIDE
     Indication: Bone disorder
     Dosage: STRENGTH: 250MCG/ML?20 MCG, DAILY
     Route: 058
     Dates: start: 202311
  2. XOLAIR [Suspect]
     Active Substance: OMALIZUMAB
     Indication: Product used for unknown indication

REACTIONS (2)
  - Injection site erythema [Unknown]
  - Off label use [Unknown]
